FAERS Safety Report 7215107-3 (Version None)
Quarter: 2011Q1

REPORT INFORMATION
  Report Type: 
  Country: None (occurrence: None)
  Receive Date: 20110105
  Receipt Date: 20110105
  Transmission Date: 20110831
  Serious: Yes (Life-Threatening)
  Sender: FDA-Public Use
  Company Number: None

PATIENT
  Age: 34 Year
  Sex: Female
  Weight: 74.8435 kg

DRUGS (1)
  1. ALUMINUM ZIRCONIUM TETRACHLOROPHY 20.0% UNILEVER, DEGREE CLINICAL STRE [Suspect]
     Indication: HYPERHIDROSIS
     Dosage: B.I.D TRANSDERMAL
     Route: 062
     Dates: start: 20101215, end: 20101229

REACTIONS (2)
  - CONDITION AGGRAVATED [None]
  - VENTRICULAR EXTRASYSTOLES [None]
